FAERS Safety Report 19719179 (Version 1)
Quarter: 2021Q3

REPORT INFORMATION
  Report Type: Spontaneous
  Country: FR (occurrence: FR)
  Receive Date: 20210818
  Receipt Date: 20210818
  Transmission Date: 20211014
  Serious: Yes (Death)
  Sender: FDA-Public Use
  Company Number: FR-TEVA-2021-FR-1941234

PATIENT
  Age: 32 Year
  Sex: Male

DRUGS (5)
  1. TRAMADOL BASE [Suspect]
     Active Substance: TRAMADOL
     Indication: PRODUCT USED FOR UNKNOWN INDICATION
     Dosage: UNKNOWNTHERAPY START DATE:NOT ASKED
     Route: 065
     Dates: end: 202010
  2. ALCOOL [Suspect]
     Active Substance: ALCOHOL
     Dosage: UNKNOWNTHERAPY START DATE :NOT AKSED
     Route: 048
     Dates: end: 202010
  3. METHADONE [Suspect]
     Active Substance: METHADONE HYDROCHLORIDE
     Indication: PRODUCT SUBSTITUTION
     Dosage: UNKNOWNTHERAPY START DATE :NOT AKSED
     Route: 065
     Dates: end: 202010
  4. BROMAZEPAM [Suspect]
     Active Substance: BROMAZEPAM
     Indication: PRODUCT USED FOR UNKNOWN INDICATION
     Dosage: UNKNOWNTHERAPY START DATE :NOT ASKED
     Route: 065
     Dates: end: 202010
  5. HEROIN [Suspect]
     Active Substance: DIAMORPHINE
     Dosage: UNKNOWNTHERAPY START DATE :NOT ASKED
     Route: 065
     Dates: end: 202010

REACTIONS (2)
  - Fall [Fatal]
  - Drug abuse [Fatal]

NARRATIVE: CASE EVENT DATE: 202010
